FAERS Safety Report 6480490-3 (Version None)
Quarter: 2009Q4

REPORT INFORMATION
  Report Type: 
  Country: None (occurrence: None)
  Receive Date: 20091123
  Receipt Date: 20090806
  Transmission Date: 20100525
  Serious: No
  Sender: FDA-Public Use
  Company Number: 8049908

PATIENT
  Age: 37 Year
  Sex: Male

DRUGS (1)
  1. CIMZIA [Suspect]
     Dosage: 400 MG SC
     Route: 058
     Dates: start: 20090309

REACTIONS (5)
  - ABDOMINAL PAIN [None]
  - FATIGUE [None]
  - FREQUENT BOWEL MOVEMENTS [None]
  - MIGRAINE [None]
  - VISION BLURRED [None]
